FAERS Safety Report 16936623 (Version 1)
Quarter: 2019Q4

REPORT INFORMATION
  Report Type: Report from Study
  Country: US (occurrence: US)
  Receive Date: 20191018
  Receipt Date: 20191018
  Transmission Date: 20200122
  Serious: Yes (Other)
  Sender: FDA-Public Use
  Company Number: US-AKCEA THERAPEUTICS-2019IS001691

PATIENT

DRUGS (5)
  1. DEMADEX [Concomitant]
     Active Substance: TORSEMIDE
     Dosage: 20MG/40MG, QD
     Dates: start: 20190912
  2. COZAAR [Concomitant]
     Active Substance: LOSARTAN POTASSIUM
     Indication: PRODUCT USED FOR UNKNOWN INDICATION
     Dosage: 50 MG, QD
     Dates: start: 20180613, end: 20190829
  3. INOTERSEN [Suspect]
     Active Substance: INOTERSEN SODIUM
     Indication: FAMILIAL AMYLOIDOSIS
     Dosage: 300 MG, QW
     Route: 058
     Dates: start: 20190424, end: 20190827
  4. INOTERSEN [Suspect]
     Active Substance: INOTERSEN SODIUM
     Dosage: 300 MG, QW
     Route: 058
     Dates: start: 20190911
  5. DEMADEX [Concomitant]
     Active Substance: TORSEMIDE
     Indication: PRODUCT USED FOR UNKNOWN INDICATION
     Dosage: 20MG/40MG, QD
     Dates: start: 20180617

REACTIONS (3)
  - Blood creatinine increased [Recovered/Resolved]
  - Glomerular filtration rate decreased [Recovered/Resolved]
  - Blood urea increased [Recovered/Resolved]

NARRATIVE: CASE EVENT DATE: 20190826
